FAERS Safety Report 4895927-0 (Version None)
Quarter: 2005Q4

REPORT INFORMATION
  Report Type: 
  Country: None (occurrence: None)
  Receive Date: 20051220
  Receipt Date: 20050407
  Transmission Date: 20060501
  Serious: Yes (Life-Threatening, Hospitalization)
  Sender: FDA-Public Use
  Company Number: US112652

PATIENT
  Age: 64 Year
  Sex: Female

DRUGS (4)
  1. ENBREL [Suspect]
     Indication: RHEUMATOID ARTHRITIS
     Dosage: 25 MG, 2 IN 1 WEEKS, SC
     Route: 058
     Dates: start: 20010701, end: 20030901
  2. ADALIMUMAB [Suspect]
     Dates: start: 20030901, end: 20040101
  3. METHOTREXATE [Suspect]
  4. PREDNISONE [Concomitant]

REACTIONS (1)
  - PERITONEAL TUBERCULOSIS [None]
